FAERS Safety Report 8138795 (Version 2)
Quarter: 2012Q4

REPORT INFORMATION
  Report Type: 
  Country: US (occurrence: US)
  Receive Date: 20110915
  Receipt Date: 20120914
  Transmission Date: 20130627
  Serious: Yes (Hospitalization)
  Sender: FDA-Public Use
  Company Number: US-US-EMD SERONO, INC.-7082011

PATIENT
  Age: 54 None
  Sex: Female

DRUGS (1)
  1. REBIF [Suspect]
     Indication: MULTIPLE SCLEROSIS
     Route: 058
     Dates: start: 20100211

REACTIONS (5)
  - Anger [Unknown]
  - Visual impairment [Unknown]
  - Restlessness [Unknown]
  - Insomnia [Unknown]
  - Multiple sclerosis [Unknown]
